FAERS Safety Report 4439448-8 (Version None)
Quarter: 2004Q3

REPORT INFORMATION
  Report Type: 
  Country: None (occurrence: None)
  Receive Date: 20040728
  Receipt Date: 20040310
  Transmission Date: 20050211
  Serious: No
  Sender: FDA-Public Use
  Company Number: USA040361637

PATIENT
  Age: 67 Year
  Sex: Female

DRUGS (5)
  1. STRATTERA [Suspect]
     Dosage: 40 MG/2 DAY
     Dates: start: 20040101
  2. PREMARIN [Concomitant]
  3. HYZAAR [Concomitant]
  4. LEVOTHROID [Concomitant]
  5. ZOCOR [Concomitant]

REACTIONS (5)
  - COUGH [None]
  - DRY MOUTH [None]
  - HOARSENESS [None]
  - HYPERTROPHY BREAST [None]
  - WEIGHT INCREASED [None]
